FAERS Safety Report 10077763 (Version 3)
Quarter: 2014Q2

REPORT INFORMATION
  Report Type: Spontaneous
  Country: US (occurrence: US)
  Receive Date: 20140414
  Receipt Date: 20140417
  Transmission Date: 20141212
  Serious: Yes (Other)
  Sender: FDA-Public Use
  Company Number: US-EXELIXIS-CABO-14003891

PATIENT
  Age: 72 Year
  Sex: Male
  Weight: 86.36 kg

DRUGS (11)
  1. COMETRIQ [Suspect]
     Indication: COLON CANCER
     Dosage: 140 MG, QD
     Route: 048
     Dates: start: 20140101, end: 20140126
  2. COMETRIQ [Suspect]
     Dosage: 100 MG, QD
     Route: 048
     Dates: start: 20140207, end: 20140317
  3. SIMVASTATIN [Concomitant]
  4. ENALAPRIL [Concomitant]
  5. NIASPAN [Concomitant]
  6. PRISTIQ [Concomitant]
  7. ABILIFY [Concomitant]
  8. WELLBUTRIN [Concomitant]
  9. BYSTOLIC [Concomitant]
  10. ASPIRIN [Concomitant]
  11. CENTRUM SILVER [Concomitant]

REACTIONS (9)
  - Drug ineffective [Unknown]
  - Diarrhoea [Unknown]
  - Fatigue [Unknown]
  - Oral pain [Unknown]
  - Dysphonia [Unknown]
  - Rash [Unknown]
  - Pain in extremity [Unknown]
  - Stomatitis [Unknown]
  - Off label use [Unknown]
